FAERS Safety Report 4887735-1 (Version None)
Quarter: 2006Q1

REPORT INFORMATION
  Report Type: 
  Country: None (occurrence: None)
  Receive Date: 20060119
  Receipt Date: 20060111
  Transmission Date: 20060701
  Serious: Yes (Death)
  Sender: FDA-Public Use
  Company Number: 163-20785-05120195

PATIENT
  Age: 74 Year
  Sex: Female

DRUGS (2)
  1. THALOMID [Suspect]
     Indication: MYELODYSPLASTIC SYNDROME
     Dosage: SEE IMAGE
     Route: 048
     Dates: start: 20050525, end: 20050803
  2. THALOMID [Suspect]
     Indication: MYELODYSPLASTIC SYNDROME
     Dosage: SEE IMAGE
     Route: 048
     Dates: start: 20050804, end: 20050901

REACTIONS (2)
  - LEUKAEMIA [None]
  - NEUROPATHY PERIPHERAL [None]
